FAERS Safety Report 14126443 (Version 2)
Quarter: 2018Q2

REPORT INFORMATION
  Report Type: Not Available
  Country: US (occurrence: US)
  Receive Date: 20171025
  Receipt Date: 20180417
  Transmission Date: 20180711
  Serious: No
  Sender: FDA-Public Use
  Company Number: US-NEUROCRINE BIOSCIENCES INC.-2017NBI00955

PATIENT
  Age: 30 Year
  Sex: Male

DRUGS (3)
  1. TYLENOL [Concomitant]
     Active Substance: ACETAMINOPHEN
  2. INGREZZA [Suspect]
     Active Substance: VALBENAZINE
     Indication: TARDIVE DYSKINESIA
     Route: 048
     Dates: start: 20170719, end: 20170725
  3. INGREZZA [Suspect]
     Active Substance: VALBENAZINE
     Route: 048
     Dates: start: 20170726, end: 20170916

REACTIONS (6)
  - Treatment noncompliance [Unknown]
  - Tooth disorder [Recovered/Resolved]
  - Drug ineffective [None]
  - Pain in jaw [Unknown]
  - Asthenia [Unknown]
  - Ear pain [Unknown]

NARRATIVE: CASE EVENT DATE: 2017
